FAERS Safety Report 22206157 (Version 1)
Quarter: 2023Q2

REPORT INFORMATION
  Report Type: Spontaneous
  Country: US (occurrence: None)
  Receive Date: 20230412
  Receipt Date: 20230412
  Transmission Date: 20230721
  Serious: Yes (Life-Threatening, Hospitalization)
  Sender: FDA-Public Use
  Company Number: None

PATIENT
  Age: 46 Year
  Sex: Male
  Weight: 65.25 kg

DRUGS (2)
  1. DUPIXENT [Suspect]
     Active Substance: DUPILUMAB
     Indication: Eczema
     Dosage: OTHER QUANTITY : 2 INJECTION(S);?
     Route: 058
     Dates: start: 20230405, end: 20230405
  2. Ivig gamaguard liquid 30g 1x every 4 weeks. [Concomitant]

REACTIONS (2)
  - Eye colour change [None]
  - Anaphylactic shock [None]

NARRATIVE: CASE EVENT DATE: 20230405
